FAERS Safety Report 8569062 (Version 2)
Quarter: 2012Q4

REPORT INFORMATION
  Report Type: 
  Country: SE (occurrence: SE)
  Receive Date: 20120518
  Receipt Date: 20120917
  Transmission Date: 20130627
  Serious: Yes (Death)
  Sender: FDA-Public Use
  Company Number: SE-B.I. PHARMACEUTICALS,INC./RIDGEFIELD-2012-SW-00402SW

PATIENT
  Age: 73 Year
  Sex: Male

DRUGS (5)
  1. PRADAXA [Suspect]
     Indication: ATRIAL FIBRILLATION
     Dosage: 220 mg
     Dates: start: 20120430, end: 20120506
  2. METOPROLOL [Concomitant]
     Indication: ANGINA PECTORIS
     Dosage: 100 mg
     Dates: start: 20101028
  3. EZETROL [Concomitant]
     Indication: HYPERLIPIDAEMIA
     Dosage: 10 mg
     Dates: start: 20101028
  4. RAMIPRIL [Concomitant]
     Indication: HYPERTENSION
     Dosage: 5 mg
     Dates: start: 20101028
  5. FELODIPIN [Concomitant]
     Dosage: 5 mg

REACTIONS (1)
  - Myocardial infarction [Fatal]
